FAERS Safety Report 8123359-0 (Version None)
Quarter: 2012Q1

REPORT INFORMATION
  Report Type: 
  Country: None (occurrence: None)
  Receive Date: 20120208
  Receipt Date: 20120130
  Transmission Date: 20120608
  Serious: Yes (Hospitalization, Other)
  Sender: FDA-Public Use
  Company Number: US-ASTRAZENECA-2011SE69486

PATIENT
  Age: 41 Year
  Sex: Female
  Weight: 201 kg

DRUGS (5)
  1. CYCLOBENZAPRINE [Concomitant]
     Indication: MUSCLE SPASMS
  2. LISINOPRIL [Concomitant]
     Indication: BLOOD PRESSURE
  3. NEXIUM [Suspect]
     Route: 048
  4. PRILOSEC [Suspect]
     Route: 048
  5. TRAZODONE HCL [Concomitant]

REACTIONS (2)
  - CHOLELITHIASIS [None]
  - DRUG INEFFECTIVE [None]
